FAERS Safety Report 10403528 (Version 1)
Quarter: 2014Q3

REPORT INFORMATION
  Report Type: Spontaneous
  Country: CA (occurrence: CA)
  Receive Date: 20140822
  Receipt Date: 20140822
  Transmission Date: 20150326
  Serious: Yes (Death, Other)
  Sender: FDA-Public Use
  Company Number: PHHY2014CA104279

PATIENT
  Sex: Male

DRUGS (8)
  1. PARACETAMOL [Suspect]
     Active Substance: ACETAMINOPHEN
  2. BENZODIAZEPINES [Concomitant]
     Active Substance: BENZODIAZEPINE
  3. ALPRAZOLAM. [Concomitant]
     Active Substance: ALPRAZOLAM
  4. FENTANYL. [Suspect]
     Active Substance: FENTANYL
     Indication: NECK PAIN
  5. MORPHINE [Suspect]
     Active Substance: MORPHINE
     Indication: MIGRAINE
     Dosage: 5 MG, UNK
  6. CODEINE [Concomitant]
     Active Substance: CODEINE
  7. GABAPENTIN. [Concomitant]
     Active Substance: GABAPENTIN
  8. FENTANYL. [Suspect]
     Active Substance: FENTANYL
     Indication: MIGRAINE
     Dosage: 25 UG/HR, UNK
     Route: 062

REACTIONS (3)
  - Wrong technique in drug usage process [None]
  - Toxicity to various agents [Unknown]
  - Respiratory distress [Fatal]
